FAERS Safety Report 6598304-X (Version None)
Quarter: 2010Q1

REPORT INFORMATION
  Report Type: 
  Country: None (occurrence: None)
  Receive Date: 20100224
  Receipt Date: 20050324
  Transmission Date: 20100710
  Serious: No
  Sender: FDA-Public Use
  Company Number: US-ALLERGAN-200502386

PATIENT
  Age: 46 Year
  Sex: Female

DRUGS (2)
  1. BOTOX COSMETIC [Suspect]
     Indication: SKIN WRINKLING
     Dosage: 37.5UNITS, PRN
     Route: 030
  2. BOTOX COSMETIC [Suspect]
     Dosage: 37UNITS, PRN
     Route: 030

REACTIONS (1)
  - DRUG INEFFECTIVE [None]
